FAERS Safety Report 7633982-5 (Version None)
Quarter: 2011Q3

REPORT INFORMATION
  Report Type: 
  Country: None (occurrence: None)
  Receive Date: 20110725
  Receipt Date: 20110720
  Transmission Date: 20111222
  Serious: Yes (Other)
  Sender: FDA-Public Use
  Company Number: GR-PFIZER INC-2011164525

PATIENT
  Sex: Male

DRUGS (3)
  1. TOVIAZ [Suspect]
     Indication: POLLAKIURIA
     Dosage: 8 MG, UNK
     Dates: start: 20110101
  2. GLUCOPHAGE [Concomitant]
     Indication: DIABETES MELLITUS
     Dosage: UNK
  3. TOVIAZ [Suspect]
     Dosage: UNK
     Dates: start: 20110713

REACTIONS (2)
  - TRANSURETHRAL PROSTATECTOMY [None]
  - DRUG INEFFECTIVE [None]
